FAERS Safety Report 9143402 (Version 1)
Quarter: 2013Q1

REPORT INFORMATION
  Report Type: Spontaneous
  Country: US (occurrence: US)
  Receive Date: 20130306
  Receipt Date: 20130306
  Transmission Date: 20140127
  Serious: No
  Sender: FDA-Public Use
  Company Number: US-ENDO PHARMACEUTICALS INC.-OPER20120466

PATIENT
  Sex: Female

DRUGS (2)
  1. OPANA ER [Suspect]
     Indication: PAIN
     Route: 048
     Dates: start: 201105, end: 201107
  2. OPANA ER [Suspect]
     Indication: BRAIN NEOPLASM
     Route: 048
     Dates: start: 201107

REACTIONS (6)
  - Cholelithiasis [Recovered/Resolved]
  - Abdominal mass [Recovered/Resolved]
  - Nephrolithiasis [Unknown]
  - Epistaxis [Not Recovered/Not Resolved]
  - Nausea [Not Recovered/Not Resolved]
  - Vomiting [Not Recovered/Not Resolved]
